FAERS Safety Report 11089615 (Version 1)
Quarter: 2015Q2

REPORT INFORMATION
  Report Type: Spontaneous
  Country: IN (occurrence: IN)
  Receive Date: 20150505
  Receipt Date: 20150505
  Transmission Date: 20150821
  Serious: Yes (Other)
  Sender: FDA-Public Use
  Company Number: IN-AUROBINDO-AUR-APL-2015-03948

PATIENT
  Age: 17 Year
  Sex: Male

DRUGS (1)
  1. RISPERIDONE 4MG [Suspect]
     Active Substance: RISPERIDONE
     Indication: OBSESSIVE-COMPULSIVE DISORDER
     Dosage: 4 MG, DAILY
     Route: 065

REACTIONS (2)
  - Extrapyramidal disorder [Unknown]
  - Drug ineffective [Unknown]
